FAERS Safety Report 5270126-1 (Version None)
Quarter: 2007Q1

REPORT INFORMATION
  Report Type: 
  Country: None (occurrence: None)
  Receive Date: 20061213
  Receipt Date: 20030908
  Transmission Date: 20070707
  Serious: Yes (Other)
  Sender: FDA-Public Use
  Company Number: 2003UW11343

PATIENT
  Age: 76 Year
  Sex: Male
  Weight: 79.8331 kg

DRUGS (7)
  1. IRESSA [Suspect]
     Indication: NON-SMALL CELL LUNG CANCER
     Dosage: 150 MG QD PO
     Route: 048
     Dates: start: 20030916
  2. QUININE SULFATE [Concomitant]
  3. DIOVAN [Concomitant]
  4. NAPROXEN [Concomitant]
  5. COMBIVENT [Concomitant]
  6. FLOVENT [Concomitant]
  7. SEREVENT [Concomitant]

REACTIONS (4)
  - DYSPHONIA [None]
  - MUSCLE SPASMS [None]
  - MYALGIA [None]
  - RASH [None]
